FAERS Safety Report 8260366-1 (Version None)
Quarter: 2012Q2

REPORT INFORMATION
  Report Type: 
  Country: None (occurrence: None)
  Receive Date: 20120404
  Receipt Date: 20120328
  Transmission Date: 20120825
  Serious: Yes (Death, Hospitalization)
  Sender: FDA-Public Use
  Company Number: US-ROCHE-782041

PATIENT
  Sex: Female
  Weight: 74 kg

DRUGS (3)
  1. GEMCITABINE HYDROCHLORIDE [Suspect]
     Indication: ENDOMETRIAL CANCER
     Dosage: FREQUENCY: CYCLIC
     Route: 042
     Dates: start: 20110415, end: 20110429
  2. TARCEVA [Suspect]
     Indication: ENDOMETRIAL CANCER
     Dosage: FREQUENCY: UID/ QD
     Route: 048
     Dates: start: 20110415, end: 20110513
  3. VISMODEGIB [Suspect]
     Indication: ENDOMETRIAL CANCER
     Dosage: FREQUNCY: UID/QD
     Route: 048
     Dates: start: 20110415, end: 20110513

REACTIONS (6)
  - HYPONATRAEMIA [None]
  - BLOOD ALKALINE PHOSPHATASE INCREASED [None]
  - EMBOLISM [None]
  - NEOPLASM [None]
  - SMALL INTESTINAL OBSTRUCTION [None]
  - DISEASE PROGRESSION [None]
